FAERS Safety Report 13161175 (Version 1)
Quarter: 2017Q1

REPORT INFORMATION
  Report Type: Spontaneous
  Country: CA (occurrence: CA)
  Receive Date: 20170130
  Receipt Date: 20170130
  Transmission Date: 20170428
  Serious: Yes (Other)
  Sender: FDA-Public Use
  Company Number: CA-TEVA-734101ACC

PATIENT
  Age: 54 Year
  Sex: Female

DRUGS (4)
  1. SYNTHROID [Concomitant]
     Active Substance: LEVOTHYROXINE SODIUM
  2. TEVA-DOXYCYCLINE [Suspect]
     Active Substance: DOXYCYCLINE
     Indication: GINGIVITIS
     Dosage: 200 MILLIGRAM DAILY;
     Route: 048
  3. METOPROLOL. [Concomitant]
     Active Substance: METOPROLOL
  4. SPIRONOLACTONE. [Concomitant]
     Active Substance: SPIRONOLACTONE

REACTIONS (3)
  - Dysphagia [Recovering/Resolving]
  - Oesophageal ulcer [Recovering/Resolving]
  - Oral discomfort [Recovering/Resolving]
